FAERS Safety Report 10600928 (Version 1)
Quarter: 2014Q4

REPORT INFORMATION
  Report Type: Spontaneous
  Country: US (occurrence: None)
  Receive Date: 20141121
  Receipt Date: 20141121
  Transmission Date: 20150529
  Serious: Yes (Other)
  Sender: FDA-Public Use
  Company Number: None

PATIENT
  Age: 40 Year
  Sex: Female
  Weight: 70.31 kg

DRUGS (2)
  1. MEDROL [Suspect]
     Active Substance: METHYLPREDNISOLONE
     Indication: INFLAMMATION
     Dosage: 6 PILLS FIRST DAY THEN REDUCED FOUR TIMES DAILY TAKEN BY MOUTH
     Route: 048
     Dates: start: 20140603, end: 20140603
  2. MEDROL [Suspect]
     Active Substance: METHYLPREDNISOLONE
     Indication: BACK PAIN
     Dosage: 6 PILLS FIRST DAY THEN REDUCED FOUR TIMES DAILY TAKEN BY MOUTH
     Route: 048
     Dates: start: 20140603, end: 20140603

REACTIONS (1)
  - Anxiety disorder [None]

NARRATIVE: CASE EVENT DATE: 20140603
